FAERS Safety Report 18324226 (Version 2)
Quarter: 2022Q4

REPORT INFORMATION
  Report Type: Spontaneous
  Country: DE (occurrence: DE)
  Receive Date: 20200929
  Receipt Date: 20221208
  Transmission Date: 20230113
  Serious: Yes (Hospitalization)
  Sender: FDA-Public Use
  Company Number: DE-ADRED-04147-01

PATIENT
  Age: 96 Year
  Sex: Female
  Weight: 40 kg

DRUGS (7)
  1. TORSEMIDE [Interacting]
     Active Substance: TORSEMIDE
     Indication: Product used for unknown indication
     Dosage: 2.5 MILLIGRAM, QD (1-0-0-0)
     Route: 048
  2. OXAZEPAM [Interacting]
     Active Substance: OXAZEPAM
     Indication: Product used for unknown indication
     Dosage: 10 MILLIGRAM, QD (0-0-0-1)
     Route: 048
  3. PIPAMPERONE HYDROCHLORIDE [Interacting]
     Active Substance: PIPAMPERONE HYDROCHLORIDE
     Indication: Product used for unknown indication
     Dosage: 20||5 MG/5ML, 5-5-5-0, JUICE
     Route: 048
  4. PIPAMPERONE HYDROCHLORIDE [Interacting]
     Active Substance: PIPAMPERONE HYDROCHLORIDE
     Indication: Product used for unknown indication
     Dosage: 20||5 MG/5ML, NEED, SOLUTION
     Route: 048
  5. CARBIMAZOLE [Concomitant]
     Active Substance: CARBIMAZOLE
     Dosage: 5 MILLIGRAM, QD (2-0-0-0)
     Route: 048
  6. ASPIRIN [Concomitant]
     Active Substance: ASPIRIN
     Dosage: 100 MILLIGRAM, QD (0-1-0-0)
     Route: 048
  7. MIRTAZAPINE [Concomitant]
     Active Substance: MIRTAZAPINE
     Dosage: 15 MILLIGRAM, QD (0-0-0-0.5)
     Route: 048

REACTIONS (7)
  - Pyrexia [Unknown]
  - Dehydration [Unknown]
  - General physical health deterioration [Unknown]
  - Hypokalaemia [Unknown]
  - Product prescribing error [Unknown]
  - Product monitoring error [Unknown]
  - Labelled drug-drug interaction medication error [Unknown]
